FAERS Safety Report 8277510-2 (Version None)
Quarter: 2012Q2

REPORT INFORMATION
  Report Type: 
  Country: None (occurrence: None)
  Receive Date: 20120412
  Receipt Date: 20120409
  Transmission Date: 20120825
  Serious: Yes (Other)
  Sender: FDA-Public Use
  Company Number: FR-BAYER-200930093GPV

PATIENT
  Age: 21 Year
  Sex: Male

DRUGS (1)
  1. PRAZIQUANTEL [Suspect]
     Indication: SCHISTOSOMIASIS

REACTIONS (6)
  - CONFUSIONAL STATE [None]
  - SPLINTER HAEMORRHAGES [None]
  - MENTAL IMPAIRMENT [None]
  - CEREBRAL INFARCTION [None]
  - VASCULITIS CEREBRAL [None]
  - ANOSOGNOSIA [None]
